FAERS Safety Report 10076991 (Version 1)
Quarter: 2014Q2

REPORT INFORMATION
  Report Type: Spontaneous
  Country: IT (occurrence: None)
  Receive Date: 20140410
  Receipt Date: 20140410
  Transmission Date: 20141212
  Serious: Yes (Hospitalization)
  Sender: FDA-Public Use
  Company Number: 2014MPI00333

PATIENT
  Age: 51 Year
  Sex: Female
  Weight: 74 kg

DRUGS (5)
  1. BRENTUXIMAB VEDOTIN (BRENTUXIMAB VEDOTIN) INJECTION [Suspect]
     Indication: HODGKIN^S DISEASE
     Dosage: 1.2 MG/KG, Q28D, INTRAVENOUS
     Dates: start: 20140203, end: 20140217
  2. DOXORUBICIN (DOXORUBICIN) INJECTION [Suspect]
     Indication: HODGKIN^S DISEASE
     Dosage: 25 MG/KG, Q28D, INTRAVENOUS
     Dates: start: 20140203, end: 20140217
  3. VINBLASTINE (VINBLASTINE SULFATE) INJECTION [Suspect]
     Indication: HODGKIN^S DISEASE
     Dosage: 9 MG/KG, Q28D, INTRAVENOUS
     Dates: start: 20140203, end: 20140217
  4. DACARBAZINE (DACARBAZINE) INJECTION [Suspect]
     Indication: HODGKIN^S DISEASE
     Dosage: 375 MG/KG, Q28D, INTRAVENOUS
     Dates: start: 20140203, end: 20140217
  5. PALONOSETRON [Suspect]

REACTIONS (6)
  - Gastrointestinal disorder [None]
  - Abdominal pain [None]
  - Nausea [None]
  - Constipation [None]
  - Weight decreased [None]
  - Hypophagia [None]
